FAERS Safety Report 4532663-4 (Version None)
Quarter: 2004Q4

REPORT INFORMATION
  Report Type: 
  Country: None (occurrence: None)
  Receive Date: 20041221
  Receipt Date: 20041216
  Transmission Date: 20050328
  Serious: Yes (Death, Hospitalization, Other)
  Sender: FDA-Public Use
  Company Number: PHHO2004JP17930

PATIENT
  Age: 74 Year
  Sex: Male
  Weight: 56 kg

DRUGS (11)
  1. NEORAL [Suspect]
     Indication: APLASTIC ANAEMIA
     Dosage: 200 MG / DAY
     Route: 048
     Dates: start: 20030620, end: 20030714
  2. NEORAL [Suspect]
     Dosage: 150 MG / DAY
     Route: 048
     Dates: start: 20030715, end: 20030803
  3. NEORAL [Suspect]
     Dosage: 50 MG / DAY
     Route: 048
     Dates: start: 20030804, end: 20030901
  4. NEORAL [Suspect]
     Dosage: 50 MG / DAY
     Route: 048
     Dates: start: 20030922, end: 20031215
  5. NEORAL [Suspect]
     Dosage: 100 MG / DAY
     Route: 048
     Dates: start: 20031216, end: 20040822
  6. NEORAL [Suspect]
     Dosage: 50 MG / DAY
     Route: 048
     Dates: start: 20040831, end: 20041202
  7. NEUTROGIN [Concomitant]
     Indication: APLASTIC ANAEMIA
  8. WARFARIN [Concomitant]
  9. LASIX [Concomitant]
  10. NU-LOTAN [Concomitant]
  11. HANP [Concomitant]

REACTIONS (12)
  - ABDOMINAL PAIN [None]
  - ANAEMIA [None]
  - BLOOD CREATININE INCREASED [None]
  - BLOOD UREA INCREASED [None]
  - DISEASE PROGRESSION [None]
  - HEPATIC NEOPLASM MALIGNANT [None]
  - HEPATIC RUPTURE [None]
  - HEPATITIS C [None]
  - INTRA-ABDOMINAL HAEMORRHAGE [None]
  - RENAL DISORDER [None]
  - RENAL IMPAIRMENT [None]
  - THERAPEUTIC EMBOLISATION [None]
